FAERS Safety Report 21659878 (Version 1)
Quarter: 2022Q4

REPORT INFORMATION
  Report Type: Spontaneous
  Country: US (occurrence: US)
  Receive Date: 20221130
  Receipt Date: 20221130
  Transmission Date: 20230113
  Serious: No
  Sender: FDA-Public Use
  Company Number: US-BRISTOL-MYERS SQUIBB COMPANY-2022-145064

PATIENT
  Age: 90 Year
  Sex: Female

DRUGS (1)
  1. REVLIMID [Suspect]
     Active Substance: LENALIDOMIDE
     Indication: Osteoporosis
     Dosage: TAKE 1 CAPSULE BY MOUTH EVERY OTHER DAY FOLLOWED BY 7 DAYS OFF.
     Route: 048

REACTIONS (2)
  - Pruritus [Unknown]
  - Intentional product use issue [Unknown]
